FAERS Safety Report 6509637-7 (Version None)
Quarter: 2009Q4

REPORT INFORMATION
  Report Type: 
  Country: None (occurrence: None)
  Receive Date: 20091221
  Receipt Date: 20091221
  Transmission Date: 20100525
  Serious: No
  Sender: FDA-Public Use
  Company Number: None

PATIENT
  Sex: Male
  Weight: 71 kg

DRUGS (11)
  1. ZOMETA [Suspect]
     Dosage: 3.3 MG
  2. CALCIUM CARBONATE [Suspect]
     Dosage: 500 MG
  3. VITAMIN D [Suspect]
     Dosage: 400 IU
  4. ALTACE [Concomitant]
  5. AMBIEN [Concomitant]
  6. ASPIRIN [Concomitant]
  7. LIPITOR [Concomitant]
  8. NORVASC [Concomitant]
  9. PROSCAR [Concomitant]
  10. REVLIMID [Concomitant]
  11. TERAZOSIN HCL [Concomitant]

REACTIONS (11)
  - ABDOMINAL PAIN [None]
  - CHEST PAIN [None]
  - CONFUSIONAL STATE [None]
  - DISORIENTATION [None]
  - DYSPNOEA [None]
  - GENERAL PHYSICAL HEALTH DETERIORATION [None]
  - MENTAL IMPAIRMENT [None]
  - NAUSEA [None]
  - RESPIRATORY DISTRESS [None]
  - RESTLESSNESS [None]
  - VOMITING [None]
